FAERS Safety Report 20632622 (Version 1)
Quarter: 2022Q1

REPORT INFORMATION
  Report Type: Spontaneous
  Country: US (occurrence: US)
  Receive Date: 20220324
  Receipt Date: 20220324
  Transmission Date: 20220423
  Serious: No
  Sender: FDA-Public Use
  Company Number: US-NOVARTISTESTPH-NVSC2022US067367

PATIENT
  Sex: Male

DRUGS (2)
  1. TAFINLAR [Suspect]
     Active Substance: DABRAFENIB MESYLATE
     Indication: Metastasis
     Dosage: 75 MG, BID, EVERY 12 HOURS
     Route: 048
     Dates: start: 202106
  2. MEKINIST [Suspect]
     Active Substance: TRAMETINIB DIMETHYL SULFOXIDE
     Indication: Metastasis
     Dosage: 2 MG, QD
     Route: 048
     Dates: start: 202106

REACTIONS (1)
  - Drug ineffective [Unknown]
